FAERS Safety Report 5591397-8 (Version None)
Quarter: 2008Q1

REPORT INFORMATION
  Report Type: 
  Country: None (occurrence: None)
  Receive Date: 20080111
  Receipt Date: 20071228
  Transmission Date: 20080703
  Serious: Yes (Hospitalization)
  Sender: FDA-Public Use
  Company Number: DSU-2007-01041

PATIENT
  Age: 72 Year
  Sex: Female
  Weight: 73 kg

DRUGS (3)
  1. CS-8663 (TABLET) [Suspect]
     Indication: HYPERTENSION
     Dosage: 40 MG/10MG (QD), PER ORAL
     Route: 048
     Dates: start: 20071105
  2. SIMVASTATIN [Concomitant]
  3. METFORMIN HCL [Concomitant]

REACTIONS (2)
  - ARTERIAL STENOSIS [None]
  - TRANSIENT ISCHAEMIC ATTACK [None]
